FAERS Safety Report 25860041 (Version 2)
Quarter: 2025Q4

REPORT INFORMATION
  Report Type: Spontaneous
  Country: PR (occurrence: PR)
  Receive Date: 20250929
  Receipt Date: 20251229
  Transmission Date: 20260117
  Serious: No
  Sender: SYMOGEN
  Company Number: PR-PARTNER THERAPEUTICS-2025PTX00059

PATIENT
  Sex: Male

DRUGS (5)
  1. BIZENGRI [Suspect]
     Active Substance: ZENOCUTUZUMAB-ZBCO
     Indication: Lung carcinoma cell type unspecified stage 0
     Dosage: 750 MG, 2X/MONTH (EVERY 2 WEEKS)
     Route: 042
  2. CORTICOSTEROID NOS [Concomitant]
     Active Substance: CORTICOSTEROID NOS
  3. UNSPECIFIED ANTIPYRETIC [Concomitant]
  4. UNSPECIFIED H1 ANTIHISTAMINE [Concomitant]
  5. ZOFRAN [Concomitant]
     Active Substance: ONDANSETRON HYDROCHLORIDE

REACTIONS (2)
  - Diarrhoea [Unknown]
  - Off label use [Not Recovered/Not Resolved]
